FAERS Safety Report 21149723 (Version 1)
Quarter: 2022Q3

REPORT INFORMATION
  Report Type: Spontaneous
  Country: US (occurrence: US)
  Receive Date: 20220729
  Receipt Date: 20220729
  Transmission Date: 20221026
  Serious: Yes (Hospitalization, Other)
  Sender: FDA-Public Use
  Company Number: US-FreseniusKabi-FK202210484

PATIENT
  Age: 44 Year
  Sex: Female

DRUGS (1)
  1. FENTANYL [Suspect]
     Active Substance: FENTANYL
     Indication: Product used for unknown indication

REACTIONS (3)
  - Leukoencephalopathy [Unknown]
  - Overdose [Unknown]
  - Amnestic disorder [Unknown]
